FAERS Safety Report 10916338 (Version 3)
Quarter: 2015Q1

REPORT INFORMATION
  Report Type: Spontaneous
  Country: CN (occurrence: CN)
  Receive Date: 20150316
  Receipt Date: 20150327
  Transmission Date: 20150721
  Serious: Yes (Other)
  Sender: FDA-Public Use
  Company Number: CN-BAYER-2015-035212

PATIENT
  Age: 76 Year
  Sex: Female

DRUGS (1)
  1. NEXAVAR [Suspect]
     Active Substance: SORAFENIB
     Indication: RENAL CELL CARCINOMA
     Dosage: 400 MG, BID
     Route: 048
     Dates: start: 20141226

REACTIONS (8)
  - Depressed level of consciousness [Recovered/Resolved]
  - Palmar-plantar erythrodysaesthesia syndrome [None]
  - Gait disturbance [None]
  - Pain in extremity [None]
  - Melanocytic naevus [None]
  - Erythema [None]
  - Peripheral swelling [None]
  - Alopecia [None]

NARRATIVE: CASE EVENT DATE: 2015
